FAERS Safety Report 4526283-5 (Version None)
Quarter: 2004Q4

REPORT INFORMATION
  Report Type: 
  Country: None (occurrence: None)
  Receive Date: 20041203
  Receipt Date: 20040405
  Transmission Date: 20050328
  Serious: Yes (Other)
  Sender: FDA-Public Use
  Company Number: 001261

PATIENT
  Age: 55 Year
  Sex: Female

DRUGS (7)
  1. ESTRADIOL [Suspect]
     Indication: HORMONE REPLACEMENT THERAPY
     Dates: start: 20000301, end: 20000501
  2. PREMARIN [Suspect]
     Dates: start: 19930101, end: 19990101
  3. PROVERA [Suspect]
     Dates: start: 19930901, end: 19990924
  4. ESTRADERM [Suspect]
  5. MEDROXYPROGESTERONE [Suspect]
     Dates: start: 19950101, end: 19950101
  6. ESTRATEST [Suspect]
     Dates: start: 19970811, end: 20000301
  7. PREMPRO [Suspect]

REACTIONS (1)
  - BREAST CANCER [None]
